FAERS Safety Report 10183981 (Version 1)
Quarter: 2014Q2

REPORT INFORMATION
  Report Type: Spontaneous
  Country: US (occurrence: US)
  Receive Date: 20140520
  Receipt Date: 20140520
  Transmission Date: 20141212
  Serious: No
  Sender: FDA-Public Use
  Company Number: US-MYLANLABS-2013S1023801

PATIENT
  Age: 46 Year
  Sex: Female
  Weight: 81.65 kg

DRUGS (3)
  1. ESTRADIOL TABLETS, USP [Suspect]
     Indication: ARTIFICIAL MENOPAUSE
     Route: 048
     Dates: start: 20130603, end: 201307
  2. ESTRADIOL TABLETS, USP [Suspect]
     Indication: ARTIFICIAL MENOPAUSE
     Route: 048
     Dates: start: 20130708, end: 201308
  3. MOTRIN [Concomitant]

REACTIONS (3)
  - Fatigue [Recovered/Resolved]
  - Malaise [Recovered/Resolved]
  - Depressed mood [Recovered/Resolved]
